FAERS Safety Report 9802802 (Version 1)
Quarter: 2014Q1

REPORT INFORMATION
  Report Type: Spontaneous
  Country: US (occurrence: None)
  Receive Date: 20140106
  Receipt Date: 20140106
  Transmission Date: 20141002
  Serious: Yes (Disabling)
  Sender: FDA-Public Use
  Company Number: None

PATIENT
  Age: 72 Year
  Sex: Male
  Weight: 65.77 kg

DRUGS (1)
  1. MERCAPTOPURINE [Suspect]
     Indication: CROHN^S DISEASE
     Dosage: 1 PILL PER DAY ONCE DAILY TAKEN BY MOUTH
     Route: 048

REACTIONS (1)
  - Pulmonary fibrosis [None]
